FAERS Safety Report 14756500 (Version 2)
Quarter: 2018Q2

REPORT INFORMATION
  Report Type: Other
  Country: FR (occurrence: FR)
  Receive Date: 20180413
  Receipt Date: 20180518
  Transmission Date: 20180711
  Serious: Yes (Death, Life-Threatening, Hospitalization, Other)
  Sender: FDA-Public Use
  Company Number: FR-MACLEODS PHARMACEUTICALS US LTD-MAC2018012565

PATIENT

DRUGS (12)
  1. OLMESARTAN 40MG [Suspect]
     Active Substance: OLMESARTAN
     Indication: STAPHYLOCOCCAL INFECTION
     Dosage: 40 MG, UNK
     Route: 065
  2. FLUINDIONE [Concomitant]
     Active Substance: FLUINDIONE
     Indication: PRODUCT USED FOR UNKNOWN INDICATION
     Dosage: 15 MG, UNK
     Route: 065
  3. LEVOFLOXACIN. [Suspect]
     Active Substance: LEVOFLOXACIN
     Indication: STAPHYLOCOCCAL INFECTION
     Dosage: UNK
     Route: 048
     Dates: start: 20140208
  4. PRAVASTATIN. [Interacting]
     Active Substance: PRAVASTATIN
     Indication: STAPHYLOCOCCAL INFECTION
     Dosage: 40 MG, QD
     Route: 065
     Dates: start: 2007, end: 20140221
  5. GENTAMICIN. [Concomitant]
     Active Substance: GENTAMICIN
     Indication: CELLULITIS STAPHYLOCOCCAL
     Dosage: INTRAVENOUS TREATMENT FOR SHORT PERIOD OF TIME
     Route: 042
  6. OXACILLIN [Concomitant]
     Active Substance: OXACILLIN SODIUM
     Indication: CELLULITIS STAPHYLOCOCCAL
     Dosage: INTRAVENOUS TREATMENT FOR SHORT PERIOD OF TIME
     Route: 042
  7. AMIODARONE [Concomitant]
     Active Substance: AMIODARONE
     Indication: PRODUCT USED FOR UNKNOWN INDICATION
     Dosage: 200 MG, UNK
     Route: 065
  8. CIPROFLOXACIN. [Suspect]
     Active Substance: CIPROFLOXACIN
     Indication: CELLULITIS STAPHYLOCOCCAL
     Dosage: 1000 MG, QD
     Route: 048
  9. FUSIDIC ACID [Interacting]
     Active Substance: FUSIDIC ACID
     Indication: CELLULITIS STAPHYLOCOCCAL
     Dosage: 1500 MG, QD
     Route: 048
     Dates: start: 20140208, end: 20140227
  10. PROPOFOL. [Concomitant]
     Active Substance: PROPOFOL
     Indication: ENDOTRACHEAL INTUBATION
     Dosage: UNK
     Route: 065
  11. HYDROCHLOROTHIAZIDE. [Suspect]
     Active Substance: HYDROCHLOROTHIAZIDE
     Indication: STAPHYLOCOCCAL INFECTION
     Dosage: 12.5 MG, UNK
     Route: 065
  12. ALLOPURINOL. [Concomitant]
     Active Substance: ALLOPURINOL
     Indication: PRODUCT USED FOR UNKNOWN INDICATION
     Dosage: 200 MG, UNK
     Route: 065

REACTIONS (20)
  - Jaundice [Fatal]
  - Vomiting [Fatal]
  - Toxicity to various agents [Fatal]
  - Hypotension [Unknown]
  - Gastrointestinal disorder [Unknown]
  - Multiple organ dysfunction syndrome [Fatal]
  - Hyporesponsive to stimuli [Unknown]
  - Drug interaction [Unknown]
  - Diarrhoea [Fatal]
  - Dehydration [Unknown]
  - Product use in unapproved indication [Unknown]
  - Hepatocellular injury [Fatal]
  - Hypernatraemia [Fatal]
  - Acute kidney injury [Fatal]
  - Metabolic acidosis [Unknown]
  - Blood bilirubin increased [Recovering/Resolving]
  - Shock [Fatal]
  - Renal tubular necrosis [Fatal]
  - Rhabdomyolysis [Fatal]
  - Cholestasis [Fatal]
